FAERS Safety Report 8540568-7 (Version None)
Quarter: 2012Q3

REPORT INFORMATION
  Report Type: 
  Country: None (occurrence: None)
  Receive Date: 20120726
  Receipt Date: 20111219
  Transmission Date: 20120928
  Serious: No
  Sender: FDA-Public Use
  Company Number: US-ASTRAZENECA-2011SE46809

PATIENT
  Age: 50 Year
  Sex: Male
  Weight: 99.8 kg

DRUGS (1)
  1. SEROQUEL XR [Suspect]
     Indication: MOOD SWINGS
     Route: 048

REACTIONS (4)
  - INSOMNIA [None]
  - IMPAIRED WORK ABILITY [None]
  - ABNORMAL BEHAVIOUR [None]
  - DRUG DOSE OMISSION [None]
